FAERS Safety Report 10099030 (Version 1)
Quarter: 2014Q2

REPORT INFORMATION
  Report Type: Spontaneous
  Country: US (occurrence: None)
  Receive Date: 20140422
  Receipt Date: 20140422
  Transmission Date: 20141212
  Serious: No
  Sender: FDA-Public Use
  Company Number: None

PATIENT
  Age: 57 Year
  Sex: Female
  Weight: 127.92 kg

DRUGS (1)
  1. PICATO [Suspect]
     Indication: ACTINIC KERATOSIS
     Dosage: APPLIED TO A SURFACE, USUALLY THE SKIN
     Dates: start: 20140419, end: 20140419

REACTIONS (5)
  - Blister [None]
  - Headache [None]
  - Nausea [None]
  - Diarrhoea [None]
  - Weight decreased [None]
